FAERS Safety Report 6253855-2 (Version None)
Quarter: 2009Q3

REPORT INFORMATION
  Report Type: 
  Country: None (occurrence: None)
  Receive Date: 20090702
  Receipt Date: 20090625
  Transmission Date: 20100115
  Serious: Yes (Hospitalization, Other)
  Sender: FDA-Public Use
  Company Number: US-BAYER-US-2007-030209

PATIENT
  Age: 61 Year
  Sex: Male

DRUGS (1)
  1. BETASERON [Suspect]
     Indication: PROGRESSIVE RELAPSING MULTIPLE SCLEROSIS
     Dosage: TOTAL DAILY DOSE: 8 MIU
     Route: 058
     Dates: start: 19950510

REACTIONS (8)
  - CAROTID ARTERY OCCLUSION [None]
  - CONCUSSION [None]
  - FALL [None]
  - INJECTION SITE CELLULITIS [None]
  - INJECTION SITE ERYTHEMA [None]
  - INJECTION SITE PAIN [None]
  - INJECTION SITE WARMTH [None]
  - OPTIC ISCHAEMIC NEUROPATHY [None]
